FAERS Safety Report 19204482 (Version 2)
Quarter: 2021Q4

REPORT INFORMATION
  Report Type: Spontaneous
  Country: IT (occurrence: IT)
  Receive Date: 20210503
  Receipt Date: 20211214
  Transmission Date: 20220303
  Serious: Yes (Other)
  Sender: FDA-Public Use
  Company Number: IT-LUPIN PHARMACEUTICALS INC.-2021-06047

PATIENT
  Age: 34 Year
  Sex: Male

DRUGS (5)
  1. TESTOSTERONE [Suspect]
     Active Substance: TESTOSTERONE
     Indication: Physical disability
     Dosage: UNK HE TOOK REPEATED IV INJECTIONS (MISUSE)
     Route: 042
  2. STANOZOLOL [Suspect]
     Active Substance: STANOZOLOL
     Indication: Physical disability
     Dosage: UNK (HE TOOK REPEATED IV INJECTIONS (MISUSE))
     Route: 042
  3. COBICISTAT\ELVITEGRAVIR\EMTRICITABINE\TENOFOVIR ALAFENAMIDE FUMARATE [Interacting]
     Active Substance: COBICISTAT\ELVITEGRAVIR\EMTRICITABINE\TENOFOVIR ALAFENAMIDE FUMARATE
     Indication: HIV infection
     Dosage: UNK
     Route: 065
  4. SODIUM OXYBATE [Interacting]
     Active Substance: SODIUM OXYBATE
     Indication: Product used for unknown indication
     Dosage: UNK
     Route: 048
  5. BETAMETHASONE [Suspect]
     Active Substance: BETAMETHASONE
     Indication: Psoriasis
     Dosage: UNK IN EXCESS AMOUNTS
     Route: 061

REACTIONS (3)
  - Hypothalamic pituitary adrenal axis suppression [Recovering/Resolving]
  - Cushing^s syndrome [Recovering/Resolving]
  - Intentional product misuse [Unknown]
